FAERS Safety Report 23161154 (Version 1)
Quarter: 2023Q4

REPORT INFORMATION
  Report Type: Spontaneous
  Country: DE (occurrence: DE)
  Receive Date: 20231108
  Receipt Date: 20231108
  Transmission Date: 20240109
  Serious: Yes (Life-Threatening, Hospitalization, Other)
  Sender: FDA-Public Use
  Company Number: DE-NOVARTIS PHARMA AG-002147023-NVSC2020DE297876

PATIENT
  Age: 40 Year
  Sex: Female
  Weight: 100 kg

DRUGS (105)
  1. PREDNISOLONE [Suspect]
     Active Substance: PREDNISOLONE
     Indication: Hodgkin^s disease
     Dosage: 40 MG, MG/M2 (80 MG), DAY 1 - 14, DAILY
     Route: 065
     Dates: start: 20160113, end: 20160126
  2. VALSARTAN [Suspect]
     Active Substance: VALSARTAN
     Indication: Hypertension
     Dosage: UNK UNK, QD (ONCE IN THE MORNING)
     Route: 065
     Dates: start: 2008
  3. DACARBAZINE [Suspect]
     Active Substance: DACARBAZINE
     Indication: Hodgkin^s disease
     Dosage: 375 MG/M2, DAY 1 AND DAY 15
     Route: 065
     Dates: start: 20151027, end: 201512
  4. DICLOFENAC [Suspect]
     Active Substance: DICLOFENAC
     Indication: Product used for unknown indication
     Route: 065
  5. BACLOFEN [Suspect]
     Active Substance: BACLOFEN
     Indication: Product used for unknown indication
     Dosage: 200 ?G, VIA PUMP
     Route: 058
  6. BACLOFEN [Suspect]
     Active Substance: BACLOFEN
     Indication: Product used for unknown indication
     Dosage: 200 ?G, VIA PUMP
     Route: 065
  7. BACLOFEN [Suspect]
     Active Substance: BACLOFEN
     Indication: Product used for unknown indication
     Dosage: 200 ?G, VIA PUMP
     Route: 065
  8. BACLOFEN [Suspect]
     Active Substance: BACLOFEN
     Indication: Product used for unknown indication
     Dosage: UNK UNK, TID (200 ?G/20 MG VIA PUMP (1-1-1))
     Route: 058
  9. BACLOFEN [Suspect]
     Active Substance: BACLOFEN
     Indication: Product used for unknown indication
     Dosage: 200 ?G, VIA PUMP
     Route: 058
  10. CHOLECALCIFEROL [Concomitant]
     Active Substance: CHOLECALCIFEROL
     Indication: Product used for unknown indication
     Dosage: 100 MG, QD (IN THE MORNING)
     Route: 065
  11. ENOXAPARIN SODIUM [Concomitant]
     Active Substance: ENOXAPARIN SODIUM
     Indication: Thrombosis prophylaxis
     Dosage: 40 MG, QD
     Route: 065
  12. CLORAZEPATE DIPOTASSIUM [Concomitant]
     Active Substance: CLORAZEPATE DIPOTASSIUM
     Indication: Product used for unknown indication
     Dosage: 10 MG, BID (1X 10 MG, BID, 2X DAILY (MORNING AND EVENING)
     Route: 065
  13. CLORAZEPATE DIPOTASSIUM [Concomitant]
     Active Substance: CLORAZEPATE DIPOTASSIUM
     Indication: Product used for unknown indication
     Dosage: 10 MG, QD (1X 10 MG, QD, 1X DAILY (MORNING))
     Route: 065
  14. CLORAZEPATE DIPOTASSIUM [Concomitant]
     Active Substance: CLORAZEPATE DIPOTASSIUM
     Indication: Product used for unknown indication
     Dosage: 15 MG, QD (1X 15 MG, QD, 1X DAILY (EVENING OR NIGHT))
     Route: 065
  15. LYRICA [Concomitant]
     Active Substance: PREGABALIN
     Indication: Product used for unknown indication
     Dosage: UNK UNK, BID (1X 150, 2X DAILY (MORNING AND EVENING))
     Route: 065
     Dates: start: 2016
  16. LYRICA [Concomitant]
     Active Substance: PREGABALIN
     Indication: Product used for unknown indication
     Dosage: UNK (1X 150, 1X, STOP DATE: FEB/MAR 2016)
     Route: 065
     Dates: start: 2016
  17. LYRICA [Concomitant]
     Active Substance: PREGABALIN
     Indication: Product used for unknown indication
     Dosage: UNK UNK, QD  (1X 75, 1X DAILY (EVENING), START DATE: FEB/MAR 2016)
     Route: 065
     Dates: start: 2016
  18. LYRICA [Concomitant]
     Active Substance: PREGABALIN
     Indication: Product used for unknown indication
     Dosage: UNK (1X 150, 1X, STOP DATE:FEB/MAR 2016)
     Route: 065
     Dates: start: 2016
  19. LYRICA [Concomitant]
     Active Substance: PREGABALIN
     Indication: Product used for unknown indication
     Dosage: UNK (1X 150, 1X, STOP DATE:FEB/MAR 2016)
     Route: 065
     Dates: start: 2016
  20. LYRICA [Concomitant]
     Active Substance: PREGABALIN
     Indication: Product used for unknown indication
     Dosage: UNK UNK, BID (1X 150, 2X DAILY (MORNING AND EVENING))
     Route: 065
     Dates: start: 2016
  21. LYRICA [Concomitant]
     Active Substance: PREGABALIN
     Indication: Product used for unknown indication
     Dosage: UNK (1X 150, 1X, STOP DATE:FEB/MAR 2016)
     Route: 065
     Dates: start: 2016
  22. LYRICA [Concomitant]
     Active Substance: PREGABALIN
     Indication: Product used for unknown indication
     Dosage: UNK UNK, BID (1X 150, 2X DAILY (MORNING AND EVENING))
     Route: 065
  23. LYRICA [Concomitant]
     Active Substance: PREGABALIN
     Indication: Product used for unknown indication
     Dosage: UNK UNK, QD (2X 75, 1X DAILY (MORNING), START DATE:FEB/MAR 2016)
     Route: 065
     Dates: start: 2016
  24. LYRICA [Concomitant]
     Active Substance: PREGABALIN
     Indication: Product used for unknown indication
     Dosage: UNK UNK, BID (1X 150, 2X DAILY (MORNING AND EVENING))
     Route: 065
     Dates: start: 2016
  25. PROCARBAZINE [Suspect]
     Active Substance: PROCARBAZINE
     Indication: Hodgkin^s disease
     Dosage: 100 MG/M2 (200 MG), DAY 1-7, DAILY
     Route: 065
     Dates: start: 20190113, end: 20190119
  26. MOVICOL [Concomitant]
     Active Substance: POLYETHYLENE GLYCOL 3350\POTASSIUM CHLORIDE\SODIUM BICARBONATE\SODIUM CHLORIDE
     Indication: Product used for unknown indication
     Dosage: 1 DF SACHET, 1X IF NEEDED
     Route: 065
  27. HYDROMORPHONE [Concomitant]
     Active Substance: HYDROMORPHONE
     Indication: Product used for unknown indication
     Dosage: 8 MG, BID
     Route: 065
     Dates: end: 201511
  28. DIAZEPAM [Concomitant]
     Active Substance: DIAZEPAM
     Indication: Product used for unknown indication
     Dosage: UNK, QD (1X 2.5, QD, 1X DAILY (EVENING))
     Route: 065
  29. DIAZEPAM [Concomitant]
     Active Substance: DIAZEPAM
     Indication: Product used for unknown indication
     Dosage: UNK, QD (1X 2.5, QD, 1X DAILY (EVENING))
     Route: 065
  30. DIAZEPAM [Concomitant]
     Active Substance: DIAZEPAM
     Indication: Product used for unknown indication
     Dosage: UNK, QD (1X 2.5, QD, 1X DAILY (MORNING))
     Route: 065
  31. DIAZEPAM [Concomitant]
     Active Substance: DIAZEPAM
     Indication: Product used for unknown indication
     Dosage: UNK, QD (1X 2.5, QD, 1X DAILY (MORNING))
     Route: 065
  32. HYDROCHLOROTHIAZIDE\VALSARTAN [Suspect]
     Active Substance: HYDROCHLOROTHIAZIDE\VALSARTAN
     Indication: Hypertension
     Dosage: 1 DF, QD (IN MORNING 1-0-0)
     Route: 065
     Dates: start: 201407, end: 201407
  33. HYDROCHLOROTHIAZIDE\VALSARTAN [Suspect]
     Active Substance: HYDROCHLOROTHIAZIDE\VALSARTAN
     Indication: Hypertension
     Dosage: UNK
     Route: 065
     Dates: start: 20160427
  34. HYDROCHLOROTHIAZIDE\VALSARTAN [Suspect]
     Active Substance: HYDROCHLOROTHIAZIDE\VALSARTAN
     Indication: Hypertension
     Dosage: UNK
     Route: 065
     Dates: start: 20140707
  35. HYDROCHLOROTHIAZIDE\VALSARTAN [Suspect]
     Active Substance: HYDROCHLOROTHIAZIDE\VALSARTAN
     Indication: Hypertension
     Dosage: UNK
     Route: 065
     Dates: start: 20141014
  36. HYDROCHLOROTHIAZIDE\VALSARTAN [Suspect]
     Active Substance: HYDROCHLOROTHIAZIDE\VALSARTAN
     Indication: Hypertension
     Dosage: UNK
     Route: 065
     Dates: start: 20150102
  37. HYDROCHLOROTHIAZIDE\VALSARTAN [Suspect]
     Active Substance: HYDROCHLOROTHIAZIDE\VALSARTAN
     Indication: Hypertension
     Dosage: UNK UNK, QD
     Route: 065
     Dates: end: 20170725
  38. HYDROCHLOROTHIAZIDE\VALSARTAN [Suspect]
     Active Substance: HYDROCHLOROTHIAZIDE\VALSARTAN
     Indication: Hypertension
     Dosage: 1 DF, QD (IN MORNING, 1-0-0)
     Route: 065
     Dates: start: 201410, end: 201704
  39. HYDROCHLOROTHIAZIDE\VALSARTAN [Suspect]
     Active Substance: HYDROCHLOROTHIAZIDE\VALSARTAN
     Indication: Hypertension
     Dosage: UNK
     Route: 065
  40. HYDROCHLOROTHIAZIDE\VALSARTAN [Suspect]
     Active Substance: HYDROCHLOROTHIAZIDE\VALSARTAN
     Indication: Hypertension
     Dosage: UNK
     Route: 065
     Dates: start: 20170112
  41. HYDROCHLOROTHIAZIDE\VALSARTAN [Suspect]
     Active Substance: HYDROCHLOROTHIAZIDE\VALSARTAN
     Indication: Hypertension
     Dosage: UNK
     Route: 065
     Dates: start: 20150415
  42. HYDROCHLOROTHIAZIDE\VALSARTAN [Suspect]
     Active Substance: HYDROCHLOROTHIAZIDE\VALSARTAN
     Indication: Hypertension
     Dosage: UNK
     Route: 065
     Dates: start: 20150611
  43. HYDROCHLOROTHIAZIDE\VALSARTAN [Suspect]
     Active Substance: HYDROCHLOROTHIAZIDE\VALSARTAN
     Indication: Hypertension
     Dosage: UNK
     Route: 065
     Dates: start: 20160804
  44. MOTILIUM [Concomitant]
     Active Substance: DOMPERIDONE
     Indication: Product used for unknown indication
     Dosage: 1 DF, QID (1 SACHET, 4X DAILY)
     Route: 065
  45. MOTILIUM [Concomitant]
     Active Substance: DOMPERIDONE
     Indication: Product used for unknown indication
     Dosage: 10 MG, TID (10 MG, ONCE IN THE MORNING, NOON AND EVENING)
     Route: 048
  46. MOTILIUM [Concomitant]
     Active Substance: DOMPERIDONE
     Indication: Product used for unknown indication
     Dosage: 1 DF, QID (1 SACHET, 4X DAILY)
     Route: 065
  47. VALSARTAN [Concomitant]
     Active Substance: VALSARTAN
     Indication: Product used for unknown indication
     Route: 065
     Dates: start: 20130124
  48. VALSARTAN [Concomitant]
     Active Substance: VALSARTAN
     Indication: Product used for unknown indication
     Route: 065
     Dates: start: 201301
  49. DIAZEPAM [Suspect]
     Active Substance: DIAZEPAM
     Indication: Pain in extremity
     Dosage: 10 MG
     Route: 065
     Dates: start: 20150608
  50. ETOPOSIDE [Suspect]
     Active Substance: ETOPOSIDE
     Indication: Hodgkin^s disease
     Dosage: 100 MG/M2, DAY 1-3
     Route: 065
     Dates: start: 20160113
  51. ASPIRIN [Suspect]
     Active Substance: ASPIRIN
     Indication: Product used for unknown indication
     Route: 065
  52. VINCRISTINE [Suspect]
     Active Substance: VINCRISTINE
     Indication: Hodgkin^s disease
     Dosage: 2 MG, ABSOLUTE, DAY 8
     Route: 065
     Dates: start: 20160120
  53. NEULASTA [Suspect]
     Active Substance: PEGFILGRASTIM
     Indication: Neutropenia
     Dosage: UNK
     Route: 058
     Dates: start: 20151212, end: 20151212
  54. PIRITRAMIDE [Suspect]
     Active Substance: PIRITRAMIDE
     Indication: Back pain
     Dosage: 15 MG
     Route: 065
     Dates: start: 20150608
  55. LEVOTHYROXINE [Concomitant]
     Active Substance: LEVOTHYROXINE
     Indication: Product used for unknown indication
     Dosage: UNK
     Route: 065
  56. DOXORUBICIN HYDROCHLORIDE [Suspect]
     Active Substance: DOXORUBICIN HYDROCHLORIDE
     Indication: Hodgkin^s disease
     Dosage: 25 MG/M2 (DAY 1 AND DAY 15)
     Route: 065
     Dates: start: 20151027, end: 201512
  57. DOXORUBICIN HYDROCHLORIDE [Suspect]
     Active Substance: DOXORUBICIN HYDROCHLORIDE
     Indication: Hodgkin^s disease
     Dosage: 25 MG/M2 (DAY 1)
     Route: 065
     Dates: start: 20160113
  58. VINBLASTINE [Suspect]
     Active Substance: VINBLASTINE
     Indication: Hodgkin^s disease
     Dosage: 6 MG/M2, (DAY 1 AND DAY 15)
     Route: 065
     Dates: start: 20151027, end: 201512
  59. CYCLOPHOSPHAMIDE [Suspect]
     Active Substance: CYCLOPHOSPHAMIDE
     Indication: Hodgkin^s disease
     Dosage: 750 MG/M2
     Route: 065
     Dates: start: 20160113
  60. LENOGRASTIM [Suspect]
     Active Substance: LENOGRASTIM
     Indication: Neutropenia
     Route: 065
     Dates: start: 201511
  61. LENOGRASTIM [Suspect]
     Active Substance: LENOGRASTIM
     Indication: Neutropenia
     Dosage: QD (1X 34, QD, 1X DAILY)
     Route: 065
     Dates: start: 20160203, end: 20160205
  62. LENOGRASTIM [Suspect]
     Active Substance: LENOGRASTIM
     Indication: Neutropenia
     Route: 065
     Dates: start: 201511, end: 201511
  63. LENOGRASTIM [Suspect]
     Active Substance: LENOGRASTIM
     Indication: Neutropenia
     Dosage: QD (1X 34, QD, 1X DAILY)
     Route: 065
     Dates: start: 20160120, end: 201601
  64. IBUPROFEN [Suspect]
     Active Substance: IBUPROFEN
     Indication: Product used for unknown indication
     Dosage: UNK
     Route: 065
  65. IBUPROFEN [Suspect]
     Active Substance: IBUPROFEN
     Indication: Product used for unknown indication
     Dosage: UNK
     Route: 065
  66. MORPHINE [Concomitant]
     Active Substance: MORPHINE
     Indication: Pain
     Dosage: UNK, VIA PUMP
     Route: 065
  67. MORPHINE [Concomitant]
     Active Substance: MORPHINE
     Indication: Pain
     Dosage: UNK, VIA PUMP
     Route: 065
  68. PANTOZOL [Concomitant]
     Active Substance: PANTOPRAZOLE SODIUM
     Indication: Product used for unknown indication
     Dosage: UNK UNK, QD (1X 40, 1X DAILY (MORNING))
     Route: 065
  69. PANTOZOL [Concomitant]
     Active Substance: PANTOPRAZOLE SODIUM
     Indication: Product used for unknown indication
     Dosage: UNK UNK, QD (1X 40, 1X DAILY (EVENING))
     Route: 065
  70. PANTOZOL [Concomitant]
     Active Substance: PANTOPRAZOLE SODIUM
     Indication: Product used for unknown indication
     Dosage: UNK UNK, QD (1X 40, 1X DAILY (MORNING))
     Route: 065
  71. PANTOZOL [Concomitant]
     Active Substance: PANTOPRAZOLE SODIUM
     Indication: Product used for unknown indication
     Dosage: UNK UNK, QD (1X 40, 1X DAILY (EVENING))
     Route: 065
  72. PANTOZOL [Concomitant]
     Active Substance: PANTOPRAZOLE SODIUM
     Indication: Product used for unknown indication
     Dosage: 40 MG, QD
     Route: 065
  73. BLEOMYCIN [Suspect]
     Active Substance: BLEOMYCIN SULFATE
     Indication: Hodgkin^s disease
     Dosage: 10 MG/M2, DAY 8
     Route: 065
     Dates: start: 20160120
  74. BLEOMYCIN [Suspect]
     Active Substance: BLEOMYCIN SULFATE
     Indication: Hodgkin^s disease
     Dosage: 25 MG/M2 (DAY 1 AND DAY 15)
     Route: 065
     Dates: start: 20151027, end: 201512
  75. HYDROCHLOROTHIAZIDE\VALSARTAN [Concomitant]
     Active Substance: HYDROCHLOROTHIAZIDE\VALSARTAN
     Indication: Hypertension
     Route: 065
     Dates: start: 20170411
  76. HYDROCHLOROTHIAZIDE\VALSARTAN [Concomitant]
     Active Substance: HYDROCHLOROTHIAZIDE\VALSARTAN
     Indication: Hypertension
     Dosage: UNK
     Route: 065
     Dates: start: 201704, end: 2017
  77. HYDROCHLOROTHIAZIDE\VALSARTAN [Concomitant]
     Active Substance: HYDROCHLOROTHIAZIDE\VALSARTAN
     Indication: Hypertension
     Route: 065
     Dates: start: 20170725
  78. SULFAMETHOXAZOLE\TRIMETHOPRIM [Concomitant]
     Active Substance: SULFAMETHOXAZOLE\TRIMETHOPRIM
     Indication: Pneumonia
     Route: 065
  79. CLONIDINE [Concomitant]
     Active Substance: CLONIDINE
     Indication: Hypertension
     Dosage: UNK UNK, BID (1X 0.5 MG)
     Route: 065
  80. CLONIDINE [Concomitant]
     Active Substance: CLONIDINE
     Indication: Hypertension
     Dosage: 0.5 MG, BID (2X 0.5 MG)
     Route: 065
  81. CLONIDINE [Concomitant]
     Active Substance: CLONIDINE
     Indication: Hypertension
     Dosage: 0.15 UG, BID (1-0-1 IN MORNING AND EVENING)
     Route: 016
  82. VALSARTAN [Suspect]
     Active Substance: VALSARTAN
     Indication: Hypertension
     Dosage: UNK, QD (160 MG/12.5 MG)
     Route: 065
     Dates: start: 201407, end: 201410
  83. VALSARTAN [Suspect]
     Active Substance: VALSARTAN
     Indication: Hypertension
     Dosage: UNK
     Route: 065
     Dates: start: 20150415
  84. VALSARTAN [Suspect]
     Active Substance: VALSARTAN
     Indication: Hypertension
     Dosage: 80 MG
     Route: 065
     Dates: start: 201407, end: 201410
  85. VALSARTAN [Suspect]
     Active Substance: VALSARTAN
     Indication: Hypertension
     Dosage: UNK
     Route: 065
     Dates: start: 20150611
  86. VALSARTAN [Suspect]
     Active Substance: VALSARTAN
     Indication: Hypertension
     Dosage: UNK
     Route: 065
     Dates: start: 20160427
  87. VALSARTAN [Suspect]
     Active Substance: VALSARTAN
     Indication: Hypertension
     Dosage: UNK
     Route: 065
     Dates: start: 20160804
  88. VALSARTAN [Suspect]
     Active Substance: VALSARTAN
     Indication: Hypertension
     Dosage: UNK
     Route: 065
     Dates: start: 20150102
  89. VALSARTAN [Suspect]
     Active Substance: VALSARTAN
     Indication: Hypertension
     Dosage: 80 MG, QD
     Route: 065
     Dates: start: 201407, end: 201410
  90. VALSARTAN [Suspect]
     Active Substance: VALSARTAN
     Indication: Hypertension
     Dosage: UNK
     Route: 065
     Dates: start: 201410, end: 201704
  91. VALSARTAN [Suspect]
     Active Substance: VALSARTAN
     Indication: Hypertension
     Dosage: 80 MG
     Route: 065
     Dates: start: 20140707
  92. VALSARTAN [Suspect]
     Active Substance: VALSARTAN
     Indication: Hypertension
     Dosage: UNK
     Route: 065
     Dates: start: 20140707
  93. VALSARTAN [Suspect]
     Active Substance: VALSARTAN
     Indication: Hypertension
     Dosage: UNK
     Route: 065
     Dates: start: 20141014
  94. VALSARTAN [Suspect]
     Active Substance: VALSARTAN
     Indication: Hypertension
     Dosage: UNK
     Route: 065
     Dates: start: 20140707
  95. SULFAMETHOXAZOLE\TRIMETHOPRIM [Concomitant]
     Active Substance: SULFAMETHOXAZOLE\TRIMETHOPRIM
     Indication: Pneumonia
     Dosage: 1 DF, BID (ON SATURDAY AND SUNDAY)
     Route: 065
  96. CITALOPRAM [Concomitant]
     Active Substance: CITALOPRAM HYDROBROMIDE
     Indication: Product used for unknown indication
     Dosage: UNK UNK, QD (1X 20, 1X DAILY (MORNING))
     Route: 065
  97. CITALOPRAM [Concomitant]
     Active Substance: CITALOPRAM HYDROBROMIDE
     Indication: Product used for unknown indication
     Dosage: UNK UNK, QD (1X 20, 1X DAILY (MORNING))
     Route: 065
  98. BACLOFEN [Concomitant]
     Active Substance: BACLOFEN
     Indication: Product used for unknown indication
     Route: 048
     Dates: start: 20140704, end: 20140712
  99. BACLOFEN [Concomitant]
     Active Substance: BACLOFEN
     Indication: Product used for unknown indication
     Dosage: 80 UG, QD (VIA PUMP)
     Route: 065
     Dates: start: 2015
  100. BACLOFEN [Concomitant]
     Active Substance: BACLOFEN
     Indication: Product used for unknown indication
     Dosage: UNK (125 UG/24 HOURS 2000 UG/ML VIA PUMP)
     Route: 065
     Dates: start: 20180228
  101. BACLOFEN [Concomitant]
     Active Substance: BACLOFEN
     Indication: Product used for unknown indication
     Dosage: UNK UNK, TID (25/20 MG IN MORNING, 20 MG IN NOON, 20 MG IN THE EVENING)
     Route: 065
  102. BACLOFEN [Concomitant]
     Active Substance: BACLOFEN
     Indication: Product used for unknown indication
     Dosage: 25 MG, QID (1-1-1-1 ONCE IN MORNING, NOON, AFTERNOON, EVENING)
     Route: 048
     Dates: start: 20180102
  103. BACLOFEN [Concomitant]
     Active Substance: BACLOFEN
     Indication: Product used for unknown indication
     Dosage: 50 UG, QD (VIA PUMP)
     Route: 065
     Dates: start: 2015, end: 2015
  104. BACLOFEN [Concomitant]
     Active Substance: BACLOFEN
     Indication: Product used for unknown indication
     Dosage: 80 UG, QD (VIA PUMP)
     Route: 065
     Dates: start: 2015
  105. ACETAMINOPHEN [Suspect]
     Active Substance: ACETAMINOPHEN
     Indication: Product used for unknown indication
     Route: 065

REACTIONS (71)
  - Pyrexia [Recovered/Resolved]
  - Uterine enlargement [Unknown]
  - Tremor [Unknown]
  - Tachycardia [Unknown]
  - Lung disorder [Unknown]
  - General physical health deterioration [Unknown]
  - Dysphagia [Unknown]
  - Fear [Unknown]
  - Pain [Recovering/Resolving]
  - Lymphadenopathy [Recovering/Resolving]
  - Drug abuse [Unknown]
  - Hyperhidrosis [Unknown]
  - Back pain [Recovering/Resolving]
  - Klebsiella infection [Unknown]
  - Hypoaesthesia [Recovering/Resolving]
  - Hypochromic anaemia [Unknown]
  - Emotional distress [Unknown]
  - Somnolence [Recovering/Resolving]
  - Hyperpyrexia [Unknown]
  - Nausea [Recovering/Resolving]
  - Hypokinesia [Not Recovered/Not Resolved]
  - Dysaesthesia [Recovering/Resolving]
  - Vomiting [Recovering/Resolving]
  - Neutropenia [Recovering/Resolving]
  - Neurological decompensation [Recovering/Resolving]
  - Drug intolerance [Unknown]
  - Inflammation [Recovering/Resolving]
  - Sleep apnoea syndrome [Unknown]
  - Hodgkin^s disease [Unknown]
  - Intervertebral disc disorder [Unknown]
  - Obesity [Unknown]
  - Inguinal hernia [Unknown]
  - Headache [Unknown]
  - Cough [Unknown]
  - Speech disorder [Unknown]
  - Pneumonia [Unknown]
  - Pulmonary congestion [Unknown]
  - Tissue infiltration [Unknown]
  - Red blood cell sedimentation rate increased [Unknown]
  - Bone pain [Recovering/Resolving]
  - Urinary tract infection [Unknown]
  - Sleep disorder [Unknown]
  - Loss of consciousness [Unknown]
  - Neoplasm malignant [Unknown]
  - Viral infection [Unknown]
  - Splenomegaly [Unknown]
  - Anaesthesia [Recovering/Resolving]
  - Fall [Unknown]
  - Pain in extremity [Recovering/Resolving]
  - Tenderness [Unknown]
  - Basal ganglion degeneration [Unknown]
  - Hypothyroidism [Unknown]
  - Drug hypersensitivity [Unknown]
  - Haematoma [Unknown]
  - Dyspnoea [Recovering/Resolving]
  - Respiratory failure [Unknown]
  - Muscle spasticity [Unknown]
  - Hyperventilation [Unknown]
  - Dizziness [Unknown]
  - Sepsis [Unknown]
  - Candida infection [Unknown]
  - Spinal pain [Unknown]
  - Fatigue [Unknown]
  - Monoplegia [Unknown]
  - Abdominal tenderness [Unknown]
  - Psychogenic seizure [Unknown]
  - Myalgia [Unknown]
  - Anaphylactic reaction [Unknown]
  - Renal cyst [Unknown]
  - Arthralgia [Unknown]
  - Hepatic steatosis [Unknown]

NARRATIVE: CASE EVENT DATE: 20140101
